FAERS Safety Report 8872278 (Version 1)
Quarter: 2012Q4

REPORT INFORMATION
  Report Type: 
  Country: US (occurrence: US)
  Receive Date: 20121026
  Receipt Date: 20121026
  Transmission Date: 20130627
  Serious: No
  Sender: FDA-Public Use
  Company Number: US-AMGEN-USASP2012049259

PATIENT
  Sex: Female
  Weight: 83.9 kg

DRUGS (10)
  1. ENBREL [Suspect]
     Dosage: 50 mg, qwk
     Route: 058
     Dates: end: 20120805
  2. VITAMIN B12                        /00056201/ [Concomitant]
     Dosage: 1000 UNK, UNK
  3. ZINC [Concomitant]
     Dosage: 30 mg, UNK
  4. ETODOLAC [Concomitant]
     Dosage: 200 mg, UNK
  5. ZETIA [Concomitant]
     Dosage: 10 mg, UNK
  6. FOLIC ACID [Concomitant]
     Dosage: 1 mg, UNK
  7. BIOTIN [Concomitant]
     Dosage: 5 mg, UNK
  8. CALCIUM + VIT D [Concomitant]
     Dosage: UNK
  9. METHOTREXATE [Concomitant]
     Dosage: 2.5 mg, UNK
  10. PROAIR HFA [Concomitant]
     Dosage: UNK

REACTIONS (1)
  - Drug ineffective [Unknown]
